FAERS Safety Report 18420651 (Version 1)
Quarter: 2020Q4

REPORT INFORMATION
  Report Type: Spontaneous
  Country: US (occurrence: US)
  Receive Date: 20201023
  Receipt Date: 20201023
  Transmission Date: 20210114
  Serious: No
  Sender: FDA-Public Use
  Company Number: US-SA-2020SA292597

PATIENT

DRUGS (19)
  1. AUBAGIO [Suspect]
     Active Substance: TERIFLUNOMIDE
     Indication: MULTIPLE SCLEROSIS
     Dosage: 14 MG, QD
     Route: 048
     Dates: start: 20180720
  2. FLUTICASONE + SALMETEROL [Concomitant]
     Active Substance: FLUTICASONE FUROATE\SALMETEROL XINAFOATE
  3. LEXAPRO [Concomitant]
     Active Substance: ESCITALOPRAM OXALATE
  4. OMEGA 3 + VITAMIN D [Concomitant]
     Dosage: 150-500
  5. MOBIC [Concomitant]
     Active Substance: MELOXICAM
  6. KLONOPIN [Concomitant]
     Active Substance: CLONAZEPAM
  7. PROMETHAZINE HCL [Concomitant]
     Active Substance: PROMETHAZINE HYDROCHLORIDE
     Dosage: UNK MG
  8. CLARITIN-D NOS [Concomitant]
     Active Substance: LORATADINE\PSEUDOEPHEDRINE SULFATE
     Dosage: UNK UNK, QD
  9. IMITREX [Concomitant]
     Active Substance: SUMATRIPTAN SUCCINATE
  10. NEURONTIN [Concomitant]
     Active Substance: GABAPENTIN
  11. ZOLOFT [Concomitant]
     Active Substance: SERTRALINE HYDROCHLORIDE
  12. VENTOLIN HFA [Concomitant]
     Active Substance: ALBUTEROL SULFATE
     Route: 055
  13. VITAMIN D2 [Concomitant]
     Active Substance: ERGOCALCIFEROL
     Dosage: 50000  UNITS
  14. PROVIGIL [Concomitant]
     Active Substance: MODAFINIL
  15. SINGULAIR [Concomitant]
     Active Substance: MONTELUKAST SODIUM
  16. ZANTAC [Concomitant]
     Active Substance: RANITIDINE HYDROCHLORIDE
  17. PROTONIX [Concomitant]
     Active Substance: PANTOPRAZOLE SODIUM
  18. CYCLOBENZAPRINE HCL [Concomitant]
     Active Substance: CYCLOBENZAPRINE HYDROCHLORIDE
     Dosage: FORMULATION: POWDER
  19. TURMERIC [CURCUMA LONGA] [Concomitant]
     Active Substance: HERBALS\TURMERIC

REACTIONS (3)
  - Hypertension [Unknown]
  - Paranasal sinus hypersecretion [Not Recovered/Not Resolved]
  - Oropharyngeal discomfort [Not Recovered/Not Resolved]

NARRATIVE: CASE EVENT DATE: 202009
